FAERS Safety Report 17103443 (Version 1)
Quarter: 2019Q4

REPORT INFORMATION
  Report Type: Spontaneous
  Country: BR (occurrence: BR)
  Receive Date: 20191203
  Receipt Date: 20191203
  Transmission Date: 20200122
  Serious: Yes (Hospitalization)
  Sender: FDA-Public Use
  Company Number: BR-ROCHE-2482134

PATIENT
  Age: 22 Year
  Sex: Female

DRUGS (2)
  1. RIVOTRIL [Suspect]
     Active Substance: CLONAZEPAM
     Indication: SLEEP DISORDER THERAPY
     Route: 048
     Dates: start: 201910
  2. ZOLPIDEM [Suspect]
     Active Substance: ZOLPIDEM TARTRATE
     Indication: SLEEP DISORDER THERAPY
     Route: 048
     Dates: start: 201910

REACTIONS (6)
  - Suicide attempt [Recovered/Resolved]
  - Insomnia [Unknown]
  - Off label use [Unknown]
  - Intentional product use issue [Unknown]
  - Intentional product misuse [Unknown]
  - Gait disturbance [Recovered/Resolved]
